FAERS Safety Report 6938425-2 (Version None)
Quarter: 2010Q3

REPORT INFORMATION
  Report Type: 
  Country: None (occurrence: None)
  Receive Date: 20100824
  Receipt Date: 20100528
  Transmission Date: 20110219
  Serious: Yes (Death, Other)
  Sender: FDA-Public Use
  Company Number: US-BAYER-201035849GPV

PATIENT

DRUGS (12)
  1. ALEMTUZUMAB [Suspect]
     Indication: CHRONIC LYMPHOCYTIC LEUKAEMIA
     Dosage: DAY 1
     Route: 058
  2. ALEMTUZUMAB [Suspect]
     Dosage: DAY 3
     Route: 058
  3. ALEMTUZUMAB [Suspect]
     Dosage: DAY 5, THEN THRICE WEEKLY FOR 6 WEEKS
     Route: 058
  4. FLUDARABINE [Suspect]
     Indication: CHRONIC LYMPHOCYTIC LEUKAEMIA
     Dosage: ON DAYS 1-5, REPEATED EVERY 28 DAYS UP TO 6 CYCLES
     Route: 042
  5. RITUXIMAB [Suspect]
     Indication: CHRONIC LYMPHOCYTIC LEUKAEMIA
     Dosage: ON DAY 3 OF CYCLE 1
     Route: 042
  6. RITUXIMAB [Suspect]
     Dosage: DAY 1 OF CYCLES 2-6, REPEATED EVERY 28 DAYS UP TO 6 CYCLES
     Route: 042
  7. RITUXIMAB [Suspect]
     Dosage: ON DAY 5 OF CYCLE 1
     Route: 042
  8. RITUXIMAB [Suspect]
     Dosage: ON DAY 1 OF CYCLE 1
     Route: 042
  9. ALLOPURINOL [Concomitant]
     Dosage: DAY 1-14 OF CYCLE 1
  10. ANTIVIRALS NOS [Concomitant]
     Indication: ANTIVIRAL PROPHYLAXIS
  11. ANTIFUNGALS NOS [Concomitant]
     Indication: INFECTION PROPHYLAXIS
  12. BLOOD TRANSFUSIONS [Concomitant]

REACTIONS (3)
  - FEBRILE NEUTROPENIA [None]
  - GRAFT VERSUS HOST DISEASE [None]
  - INFECTION [None]
